FAERS Safety Report 5384059-3 (Version None)
Quarter: 2007Q3

REPORT INFORMATION
  Report Type: 
  Country: None (occurrence: None)
  Receive Date: 20070711
  Receipt Date: 20070702
  Transmission Date: 20080115
  Serious: Yes (Hospitalization, Other)
  Sender: FDA-Public Use
  Company Number: US-ASTRAZENECA-2006UW07209

PATIENT
  Age: 51 Year
  Sex: Female
  Weight: 81.8 kg

DRUGS (1)
  1. SEROQUEL [Suspect]
     Indication: DEPRESSION
     Route: 048
     Dates: start: 20040101, end: 20060101

REACTIONS (8)
  - BLOOD CHOLESTEROL INCREASED [None]
  - GALLBLADDER DISORDER [None]
  - HYPERLIPIDAEMIA [None]
  - OBESITY [None]
  - SKIN GRAFT [None]
  - TOE AMPUTATION [None]
  - TOE OPERATION [None]
  - TYPE 2 DIABETES MELLITUS [None]
